FAERS Safety Report 7788553-7 (Version None)
Quarter: 2011Q3

REPORT INFORMATION
  Report Type: 
  Country: None (occurrence: None)
  Receive Date: 20110930
  Receipt Date: 20110921
  Transmission Date: 20111222
  Serious: Yes (Hospitalization)
  Sender: FDA-Public Use
  Company Number: US-JNJFOC-20110510117

PATIENT
  Sex: Male
  Weight: 91.9 kg

DRUGS (6)
  1. HUMIRA [Concomitant]
     Indication: INFLAMMATORY BOWEL DISEASE
     Dosage: DOSE AND FREQUENCY UNSPECIFIED
     Dates: start: 20100723
  2. REMICADE [Suspect]
     Route: 042
     Dates: start: 20100412, end: 20100818
  3. PANTOPRAZOLE [Concomitant]
  4. ANTIBIOTICS NOS [Concomitant]
     Indication: INFLAMMATORY BOWEL DISEASE
  5. REMICADE [Suspect]
     Indication: INFLAMMATORY BOWEL DISEASE
     Dosage: DOSE AND FREQUENCY UNSPECIFIED
     Route: 042
     Dates: start: 20080725
  6. PREDNISONE [Concomitant]

REACTIONS (3)
  - COLONIC STENOSIS [None]
  - ANAL ABSCESS [None]
  - ABDOMINAL ABSCESS [None]
